FAERS Safety Report 7110937-0 (Version None)
Quarter: 2010Q4

REPORT INFORMATION
  Report Type: 
  Country: None (occurrence: None)
  Receive Date: 20101118
  Receipt Date: 20101105
  Transmission Date: 20110411
  Serious: Yes (Death, Hospitalization)
  Sender: FDA-Public Use
  Company Number: DE-ELI_LILLY_AND_COMPANY-DE201009006766

PATIENT
  Sex: Female
  Weight: 60 kg

DRUGS (2)
  1. PEMETREXED [Suspect]
     Indication: NON-SMALL CELL LUNG CANCER
     Dosage: 820 MG, UNK
     Dates: start: 20100701
  2. CISPLATIN [Suspect]
     Indication: NON-SMALL CELL LUNG CANCER
     Dosage: 123 MG, UNK
     Dates: start: 20100701

REACTIONS (3)
  - BRONCHITIS [None]
  - CONFUSIONAL STATE [None]
  - GENERAL PHYSICAL HEALTH DETERIORATION [None]
